FAERS Safety Report 8457895-4 (Version None)
Quarter: 2012Q2

REPORT INFORMATION
  Report Type: 
  Country: None (occurrence: None)
  Receive Date: 20120615
  Receipt Date: 20120614
  Transmission Date: 20120825
  Serious: Yes (Life-Threatening)
  Sender: FDA-Public Use
  Company Number: ONY-2012-003

PATIENT

DRUGS (1)
  1. INFASURF PRESERVATIVE FREE [Suspect]

REACTIONS (1)
  - ILL-DEFINED DISORDER [None]
